FAERS Safety Report 4502889-4 (Version None)
Quarter: 2004Q4

REPORT INFORMATION
  Report Type: 
  Country: None (occurrence: None)
  Receive Date: 20041116
  Receipt Date: 20041116
  Transmission Date: 20050328
  Serious: Yes (Other)
  Sender: FDA-Public Use
  Company Number: None

PATIENT
  Age: 41 Year
  Sex: Female
  Weight: 67.1324 kg

DRUGS (1)
  1. TEQUIN [Suspect]
     Indication: RESPIRATORY TRACT INFECTION
     Dosage: 400MG  1 PER DAY ORAL
     Route: 048
     Dates: start: 20041106, end: 20041116

REACTIONS (2)
  - CHEST DISCOMFORT [None]
  - THROAT TIGHTNESS [None]
